FAERS Safety Report 6393043-2 (Version None)
Quarter: 2009Q4

REPORT INFORMATION
  Report Type: 
  Country: None (occurrence: None)
  Receive Date: 20091008
  Receipt Date: 20080501
  Transmission Date: 20100525
  Serious: Yes (Other)
  Sender: FDA-Public Use
  Company Number: US-ASTRAZENECA-2007UW19349

PATIENT
  Age: 12944 Day
  Sex: Female
  Weight: 115.7 kg

DRUGS (5)
  1. SEROQUEL [Suspect]
     Route: 048
  2. LYRICA [Concomitant]
     Route: 048
     Dates: start: 20060101
  3. EFFEXOR [Concomitant]
     Route: 048
     Dates: start: 20060101
  4. NORVASC [Concomitant]
     Route: 048
     Dates: start: 20060101
  5. LUNESTA [Concomitant]
     Route: 048
     Dates: start: 20060101

REACTIONS (4)
  - BLOOD GLUCOSE INCREASED [None]
  - DIABETES MELLITUS [None]
  - DIABETIC NEUROPATHY [None]
  - TYPE 2 DIABETES MELLITUS [None]
